APPROVED DRUG PRODUCT: CLOMIPRAMINE HYDROCHLORIDE
Active Ingredient: CLOMIPRAMINE HYDROCHLORIDE
Strength: 75MG
Dosage Form/Route: CAPSULE;ORAL
Application: A213221 | Product #003
Applicant: RK PHARMA INC
Approved: Jun 22, 2020 | RLD: No | RS: No | Type: DISCN